FAERS Safety Report 8182669-1 (Version None)
Quarter: 2012Q1

REPORT INFORMATION
  Report Type: 
  Country: None (occurrence: None)
  Receive Date: 20120305
  Receipt Date: 20120301
  Transmission Date: 20120608
  Serious: No
  Sender: FDA-Public Use
  Company Number: US-PFIZER INC-2012057086

PATIENT
  Sex: Female
  Weight: 75.3 kg

DRUGS (4)
  1. EFFEXOR [Concomitant]
     Indication: DEPRESSION
     Dosage: 75 MG, 2X/DAY
  2. ALPRAZOLAM [Suspect]
     Indication: ANXIETY
     Dosage: 0.5 MG, DAILY
     Dates: start: 20070101
  3. SINGULAIR [Concomitant]
     Indication: ASTHMA
     Dosage: 10 MG, DAILY
  4. ALPRAZOLAM [Suspect]
     Dosage: 0.5 MG, 2X/DAY

REACTIONS (2)
  - BLOOD CHOLESTEROL INCREASED [None]
  - DRUG INEFFECTIVE [None]
